FAERS Safety Report 14610089 (Version 2)
Quarter: 2018Q2

REPORT INFORMATION
  Report Type: Report from Study
  Country: FR (occurrence: FR)
  Receive Date: 20180307
  Receipt Date: 20180511
  Transmission Date: 20180711
  Serious: Yes (Hospitalization)
  Sender: FDA-Public Use
  Company Number: FR-PFIZER INC-2018088808

PATIENT
  Age: 2 Year
  Sex: Male

DRUGS (14)
  1. VINCRISTINE SULFATE. [Suspect]
     Active Substance: VINCRISTINE SULFATE
     Indication: ACUTE LYMPHOCYTIC LEUKAEMIA
     Dosage: 0.93 MG, UNK
     Route: 042
     Dates: start: 20171113, end: 20171120
  2. ONCASPAR [Suspect]
     Active Substance: PEGASPARGASE
     Dosage: 1600 IU, 1X/DAY:QD
     Route: 042
     Dates: start: 20171003, end: 20171003
  3. HYDROCORTISONE. [Suspect]
     Active Substance: HYDROCORTISONE
     Indication: ACUTE LYMPHOCYTIC LEUKAEMIA
     Dosage: 12.5 MG, UNK
     Route: 037
     Dates: start: 20171130, end: 20171228
  4. 6-MERCAPTOPURINE MONOHYDRATE [Suspect]
     Active Substance: MERCAPTOPURINE
     Indication: ACUTE LYMPHOCYTIC LEUKAEMIA
     Dosage: 30 MG, UNK
     Route: 048
     Dates: start: 20171113, end: 20171120
  5. METHOTREXATE SODIUM. [Suspect]
     Active Substance: METHOTREXATE SODIUM
     Indication: ACUTE LYMPHOCYTIC LEUKAEMIA
     Dosage: 15 MG, UNK
     Route: 048
     Dates: start: 20171120, end: 20171120
  6. CYTARABINE. [Suspect]
     Active Substance: CYTARABINE
     Indication: ACUTE LYMPHOCYTIC LEUKAEMIA
     Dosage: 46 MG, UNK
     Route: 042
     Dates: start: 20171128
  7. 6-MERCAPTOPURINE MONOHYDRATE [Suspect]
     Active Substance: MERCAPTOPURINE
     Dosage: 40 MG, UNK
     Route: 048
     Dates: start: 20171127, end: 20171226
  8. CYTARABINE. [Suspect]
     Active Substance: CYTARABINE
     Dosage: 25 MG, UNK
     Route: 037
     Dates: start: 20171130, end: 20171228
  9. DEXAMETHASONE. [Suspect]
     Active Substance: DEXAMETHASONE
     Indication: ACUTE LYMPHOCYTIC LEUKAEMIA
     Dosage: 3.5 MG, UNK
     Route: 048
     Dates: start: 20171113, end: 20171120
  10. VINCRISTINE SULFATE. [Suspect]
     Active Substance: VINCRISTINE SULFATE
     Dosage: 0.9 MG, UNK
     Route: 042
     Dates: start: 20171211
  11. METHOTREXATE. [Suspect]
     Active Substance: METHOTREXATE
     Dosage: 10 MG, UNK
     Route: 037
     Dates: start: 20171114, end: 20171114
  12. CYCLOPHOSPHAMIDE. [Suspect]
     Active Substance: CYCLOPHOSPHAMIDE
     Indication: ACUTE LYMPHOCYTIC LEUKAEMIA
     Dosage: 600 MG, UNK
     Route: 042
     Dates: start: 20171127, end: 20171226
  13. ONCASPAR [Suspect]
     Active Substance: PEGASPARGASE
     Indication: ACUTE LYMPHOCYTIC LEUKAEMIA
     Dosage: 1600 IU, 1X/DAY:QD
     Route: 042
     Dates: start: 20171120, end: 20171120
  14. METHOTREXATE. [Suspect]
     Active Substance: METHOTREXATE
     Dosage: 10 MG, UNK
     Route: 037
     Dates: start: 20171130, end: 20171228

REACTIONS (1)
  - Drug hypersensitivity [Recovered/Resolved]

NARRATIVE: CASE EVENT DATE: 20171120
